FAERS Safety Report 15941004 (Version 2)
Quarter: 2019Q1

REPORT INFORMATION
  Report Type: Report from Study
  Country: None (occurrence: US)
  Receive Date: 20190208
  Receipt Date: 20190211
  Transmission Date: 20190417
  Serious: Yes (Life-Threatening, Hospitalization, Other)
  Sender: FDA-Public Use
  Company Number: US-ABBVIE-19K-163-2656217-00

PATIENT
  Age: 29 Year
  Sex: Male
  Weight: 59.93 kg

DRUGS (5)
  1. ACETAMINOPHEN. [Concomitant]
     Active Substance: ACETAMINOPHEN
     Indication: INTESTINAL RESECTION
     Dates: start: 20190129
  2. HUMIRA [Suspect]
     Active Substance: ADALIMUMAB
     Route: 058
     Dates: start: 20181213, end: 20181213
  3. HUMIRA [Suspect]
     Active Substance: ADALIMUMAB
     Indication: CROHN^S DISEASE
     Route: 058
     Dates: start: 20181212, end: 20181212
  4. HUMIRA [Suspect]
     Active Substance: ADALIMUMAB
     Route: 058
     Dates: start: 20190109, end: 20190109
  5. HUMIRA [Suspect]
     Active Substance: ADALIMUMAB
     Route: 058
     Dates: start: 20181226, end: 20181226

REACTIONS (5)
  - Abscess intestinal [Recovered/Resolved]
  - Drug ineffective [Unknown]
  - White blood cell count increased [Recovered/Resolved]
  - Intestinal perforation [Recovered/Resolved]
  - Intestinal resection [Recovering/Resolving]

NARRATIVE: CASE EVENT DATE: 20181212
